FAERS Safety Report 8066378-5 (Version None)
Quarter: 2012Q1

REPORT INFORMATION
  Report Type: 
  Country: None (occurrence: None)
  Receive Date: 20120117
  Receipt Date: 20120103
  Transmission Date: 20120608
  Serious: Yes (Hospitalization)
  Sender: FDA-Public Use
  Company Number: DSJ-2011-19824

PATIENT
  Age: 75 Year
  Sex: Male

DRUGS (5)
  1. GLUCOSAMINE/CHONDROITIN (GLUCOSAMINE, CHONDROITIN SULFATE) (GLUCOSAMIN [Concomitant]
  2. ALENDRONATE SODIUM (ALENDRONATE SODIUM) (ALENDRONATE SODIUM) [Concomitant]
  3. BENICAR [Suspect]
     Indication: HYPERTENSION
     Dosage: 40 MG (40 MG,1 IN 1 D),PER ORAL
     Route: 048
     Dates: start: 20091101, end: 20120101
  4. OMEPRAZOLE [Concomitant]
  5. CALCIUM CARBONATE (CALCIUM CARBONATE) (CALCIUM CARBONATE) [Concomitant]

REACTIONS (4)
  - KIDNEY INFECTION [None]
  - CALCULUS URINARY [None]
  - DRUG INEFFECTIVE [None]
  - BLOOD PRESSURE SYSTOLIC INCREASED [None]
